FAERS Safety Report 8858903 (Version 1)
Quarter: 2012Q4

REPORT INFORMATION
  Report Type: 
  Country: JP (occurrence: JP)
  Receive Date: 20121024
  Receipt Date: 20121024
  Transmission Date: 20130627
  Serious: Yes (Hospitalization, Other)
  Sender: FDA-Public Use
  Company Number: JP-009507513-1210JPN010089

PATIENT
  Age: 39 Year
  Sex: Female

DRUGS (5)
  1. REFLEX [Suspect]
     Indication: DEPRESSION
     Dosage: UNK
     Route: 048
     Dates: end: 20120607
  2. REFLEX [Suspect]
     Dosage: 15 mg, qd
     Dates: start: 20120608, end: 20120612
  3. LAMICTAL [Suspect]
     Dosage: UNK
     Route: 048
     Dates: end: 20120607
  4. LAMICTAL [Suspect]
     Dosage: 200 mg, qd
     Dates: start: 20120608, end: 20120612
  5. PREDNISOLONE [Concomitant]
     Dosage: 30 mg, qd
     Route: 048
     Dates: start: 20120614, end: 20120811

REACTIONS (1)
  - Drug reaction with eosinophilia and systemic symptoms [Recovering/Resolving]
